FAERS Safety Report 5389637-3 (Version None)
Quarter: 2007Q3

REPORT INFORMATION
  Report Type: 
  Country: None (occurrence: None)
  Receive Date: 20070717
  Receipt Date: 20070710
  Transmission Date: 20080115
  Serious: Yes (Other)
  Sender: FDA-Public Use
  Company Number: US-PFIZER INC-2007056533

PATIENT
  Sex: Female
  Weight: 102.27 kg

DRUGS (4)
  1. CELEBREX [Suspect]
     Indication: ARTHRITIS
     Dates: start: 20070629, end: 20070101
  2. ALLEGRA D 24 HOUR [Concomitant]
     Indication: MULTIPLE ALLERGIES
  3. BUMEX [Concomitant]
     Indication: DIURETIC THERAPY
  4. POTASSIUM CHLORIDE [Concomitant]
     Indication: MINERAL SUPPLEMENTATION

REACTIONS (1)
  - NEPHROTIC SYNDROME [None]
